FAERS Safety Report 18461988 (Version 1)
Quarter: 2020Q4

REPORT INFORMATION
  Report Type: Spontaneous
  Country: AU (occurrence: AU)
  Receive Date: 20201104
  Receipt Date: 20201104
  Transmission Date: 20210114
  Serious: Yes (Other)
  Sender: FDA-Public Use
  Company Number: AU-ALEMBIC PHARMACUETICALS LIMITED-2020SCAL000465

PATIENT

DRUGS (5)
  1. CANDESARTAN. [Suspect]
     Active Substance: CANDESARTAN
     Indication: BLOOD PRESSURE ABNORMAL
     Dosage: 32 MG, OD
  2. ADDOS XR [Suspect]
     Active Substance: NIFEDIPINE
     Indication: HYPERTENSION
     Dosage: 30 MG, OD
     Dates: start: 20200922, end: 20200925
  3. ATENOLOL. [Concomitant]
     Active Substance: ATENOLOL
     Indication: HYPERTENSION
     Dosage: 50 MG, BID
     Dates: start: 20200922
  4. LEVOTHYROXINE. [Concomitant]
     Active Substance: LEVOTHYROXINE
     Indication: HYPOTHYROIDISM
     Dosage: 50 MG, OD
  5. PROGYNOVA [ESTRADIOL VALERATE] [Concomitant]
     Active Substance: ESTRADIOL VALERATE
     Indication: HYPERTENSION
     Dosage: 2 MG, OD

REACTIONS (6)
  - Flushing [Recovered/Resolved]
  - Anxiety [Unknown]
  - Hot flush [Unknown]
  - Rash [Recovered/Resolved]
  - Nausea [Unknown]
  - Feeling abnormal [Recovered/Resolved]

NARRATIVE: CASE EVENT DATE: 20200922
